FAERS Safety Report 5089789-9 (Version None)
Quarter: 2006Q3

REPORT INFORMATION
  Report Type: 
  Country: None (occurrence: None)
  Receive Date: 20060828
  Receipt Date: 20060630
  Transmission Date: 20061208
  Serious: Yes (Other)
  Sender: FDA-Public Use
  Company Number: PHNU2006DE02409

PATIENT
  Age: 47 Year
  Sex: Male

DRUGS (1)
  1. LEPONEX [Suspect]
     Dosage: UP TO 100 MG/DAY
     Route: 048
     Dates: start: 19950101

REACTIONS (9)
  - ABDOMINAL PAIN [None]
  - ANAEMIA [None]
  - ASCITES [None]
  - COLON CANCER [None]
  - GAMMA-GLUTAMYLTRANSFERASE INCREASED [None]
  - HISTOLOGY ABNORMAL [None]
  - METASTASES TO LIVER [None]
  - PERITONEAL CARCINOMA [None]
  - ULTRASOUND SCAN ABNORMAL [None]
